FAERS Safety Report 13040393 (Version 1)
Quarter: 2016Q4

REPORT INFORMATION
  Report Type: Spontaneous
  Country: US (occurrence: US)
  Receive Date: 20161219
  Receipt Date: 20161219
  Transmission Date: 20170207
  Serious: Yes (Hospitalization, Other)
  Sender: FDA-Public Use
  Company Number: US-PFIZER INC-2016582085

PATIENT
  Age: 12 Year
  Sex: Male
  Weight: 38 kg

DRUGS (2)
  1. GENOTROPIN [Suspect]
     Active Substance: SOMATROPIN
     Dosage: 2 MG, 1X/DAY
  2. GENOTROPIN [Suspect]
     Active Substance: SOMATROPIN
     Indication: GROWTH HORMONE DEFICIENCY
     Dosage: 1.8 MG, 1X/DAY, EVERY NIGHT

REACTIONS (3)
  - Cough [Unknown]
  - Drug effect incomplete [Unknown]
  - T-cell lymphoma [Recovering/Resolving]

NARRATIVE: CASE EVENT DATE: 20161130
